FAERS Safety Report 9267015 (Version 1)
Quarter: 2013Q2

REPORT INFORMATION
  Report Type: Spontaneous
  Country: US (occurrence: US)
  Receive Date: 20130502
  Receipt Date: 20130502
  Transmission Date: 20140414
  Serious: No
  Sender: FDA-Public Use
  Company Number: US-PFIZER INC-2013133399

PATIENT
  Sex: Female
  Weight: 56.69 kg

DRUGS (4)
  1. LEVOXYL [Suspect]
     Indication: THYROID DISORDER
     Dosage: 0.1 MG, 5 DAYS A WEEK
     Dates: start: 1991
  2. LEVOXYL [Suspect]
     Dosage: 0.08 MG, 1X/DAY
  3. LEVOXYL [Suspect]
     Dosage: 0.1 MG, 5 DAYS A WEEK
     Dates: end: 201304
  4. LEVOTHYROXINE SODIUM [Suspect]
     Indication: THYROID DISORDER
     Dosage: UNK

REACTIONS (1)
  - Heart rate increased [Not Recovered/Not Resolved]
